FAERS Safety Report 5822063-9 (Version None)
Quarter: 2008Q3

REPORT INFORMATION
  Report Type: 
  Country: None (occurrence: None)
  Receive Date: 20080725
  Receipt Date: 20080721
  Transmission Date: 20090109
  Serious: Yes (Disabling)
  Sender: FDA-Public Use
  Company Number: CH-BAYER-200815879GPV

PATIENT
  Age: 61 Year
  Sex: Female
  Weight: 75 kg

DRUGS (3)
  1. BETAFERON [Suspect]
     Indication: UNEVALUABLE EVENT
     Route: 058
     Dates: start: 20001001
  2. LEXOTANIL (BROMAZEPAMUM) [Concomitant]
  3. ASPIRIN [Concomitant]

REACTIONS (1)
  - CHILLS [None]
